FAERS Safety Report 21928774 (Version 1)
Quarter: 2023Q1

REPORT INFORMATION
  Report Type: Spontaneous
  Country: US (occurrence: None)
  Receive Date: 20230131
  Receipt Date: 20230131
  Transmission Date: 20230417
  Serious: Yes (Other)
  Sender: FDA-Public Use
  Company Number: 2023A023178

PATIENT
  Age: 21003 Day

DRUGS (1)
  1. FASENRA [Suspect]
     Active Substance: BENRALIZUMAB
     Indication: Asthma
     Route: 058
     Dates: start: 20221212, end: 20221212

REACTIONS (3)
  - Asthma [Unknown]
  - Inappropriate schedule of product administration [Unknown]
  - Insurance issue [Unknown]

NARRATIVE: CASE EVENT DATE: 20230109
